FAERS Safety Report 7963379-X (Version None)
Quarter: 2011Q4

REPORT INFORMATION
  Report Type: 
  Country: None (occurrence: None)
  Receive Date: 20111205
  Receipt Date: 20111128
  Transmission Date: 20120403
  Serious: Yes (Other)
  Sender: FDA-Public Use
  Company Number: ADR-2011-11302

PATIENT
  Age: 27 Year
  Sex: Female

DRUGS (1)
  1. LIORESAL [Suspect]
     Indication: MUSCLE SPASTICITY
     Dosage: 899.4 MCG, DAILY, INTRATH
     Route: 037

REACTIONS (6)
  - IMPLANT SITE INFECTION [None]
  - POSTURING [None]
  - DEVICE BREAKAGE [None]
  - IMPLANT SITE EFFUSION [None]
  - MUSCLE SPASTICITY [None]
  - IMPLANT SITE ABSCESS [None]
